FAERS Safety Report 22623140 (Version 1)
Quarter: 2023Q2

REPORT INFORMATION
  Report Type: Spontaneous
  Country: US (occurrence: US)
  Receive Date: 20230621
  Receipt Date: 20230621
  Transmission Date: 20230721
  Serious: Yes (Life-Threatening, Hospitalization)
  Sender: FDA-Public Use
  Company Number: US-drreddys-LIT/USA/23/0167415

PATIENT
  Age: 53 Year
  Sex: Female

DRUGS (4)
  1. OXYCODONE HYDROCHLORIDE [Suspect]
     Active Substance: OXYCODONE HYDROCHLORIDE
     Indication: Product used for unknown indication
     Dosage: 4 TABLETS
  2. HYDROMORPHONE [Concomitant]
     Active Substance: HYDROMORPHONE
     Indication: Product used for unknown indication
     Dosage: 200 MICROG/ML; THROUGH THE PUMP
  3. HYDROMORPHONE [Concomitant]
     Active Substance: HYDROMORPHONE
     Dosage: WEANED DOWN TO 9.61 MICROG/ML/DAY; OVER 2 MONTHS
  4. BUPIVACAINE [Concomitant]
     Active Substance: BUPIVACAINE
     Indication: Product used for unknown indication
     Dosage: THROUGH THE PUMP

REACTIONS (3)
  - Drug withdrawal syndrome [Unknown]
  - Overdose [Unknown]
  - Intentional product misuse [Unknown]
